FAERS Safety Report 6176764-6 (Version None)
Quarter: 2009Q2

REPORT INFORMATION
  Report Type: 
  Country: None (occurrence: None)
  Receive Date: 20090501
  Receipt Date: 20090102
  Transmission Date: 20091009
  Serious: Yes (Other)
  Sender: FDA-Public Use
  Company Number: US-PFIZER INC-2004057002

PATIENT
  Sex: Female

DRUGS (8)
  1. LIPITOR [Suspect]
     Route: 048
     Dates: start: 20040101, end: 20040901
  2. GLUCOTROL XL [Suspect]
     Indication: DIABETES MELLITUS
     Dosage: INTERVAL:  EVERY OTHER DAY
     Route: 048
     Dates: start: 20040101
  3. ACCURETIC [Suspect]
     Dosage: 20/12.5 MG
     Route: 048
     Dates: start: 20040101
  4. ACCUPRIL [Suspect]
     Indication: HYPERTENSION
     Route: 048
  5. DIABINESE [Suspect]
     Indication: DIABETES MELLITUS
     Route: 065
  6. PROCARDIA XL [Suspect]
     Indication: HYPERTENSION
     Route: 065
  7. PROCARDIA [Concomitant]
     Route: 065
  8. ASPIRIN [Concomitant]
     Route: 065

REACTIONS (32)
  - ABASIA [None]
  - ANXIETY [None]
  - ARTHRITIS [None]
  - BLADDER DISORDER [None]
  - BLOOD GLUCOSE DECREASED [None]
  - BLOOD PRESSURE DIASTOLIC DECREASED [None]
  - BLOOD TRIGLYCERIDES INCREASED [None]
  - CONSTIPATION [None]
  - COUGH [None]
  - DIZZINESS [None]
  - DRUG INEFFECTIVE [None]
  - DYSPEPSIA [None]
  - DYSSTASIA [None]
  - EYE PAIN [None]
  - FATIGUE [None]
  - FEELING ABNORMAL [None]
  - FEELING HOT [None]
  - GOUT [None]
  - HEADACHE [None]
  - HEARING IMPAIRED [None]
  - HYPERTENSION [None]
  - HYPOAESTHESIA [None]
  - MEMORY IMPAIRMENT [None]
  - MUSCLE SPASMS [None]
  - MUSCULAR WEAKNESS [None]
  - NERVOUSNESS [None]
  - PAIN [None]
  - POLLAKIURIA [None]
  - SENSORY LOSS [None]
  - TREMOR [None]
  - VISION BLURRED [None]
  - WEIGHT DECREASED [None]
